FAERS Safety Report 24056454 (Version 1)
Quarter: 2024Q3

REPORT INFORMATION
  Report Type: Spontaneous
  Country: US (occurrence: US)
  Receive Date: 20240705
  Receipt Date: 20240705
  Transmission Date: 20241016
  Serious: No
  Sender: BRISTOL MYERS SQUIBB
  Company Number: US-BRISTOL-MYERS SQUIBB COMPANY-2024-107390

PATIENT
  Age: 58 Year
  Sex: Female
  Weight: 58.3 kg

DRUGS (2)
  1. ABRAXANE [Suspect]
     Active Substance: PACLITAXEL
     Indication: Ductal adenocarcinoma of pancreas
     Dosage: ONLY RECEIVED 1 DOSE
     Dates: start: 20230926, end: 20230926
  2. GEMCITABINE [Suspect]
     Active Substance: GEMCITABINE
     Indication: Ductal adenocarcinoma of pancreas
     Dosage: ONLY RECEIVED 1 DOSE
     Dates: start: 20230926, end: 20230926

REACTIONS (1)
  - Drug intolerance [Unknown]
